FAERS Safety Report 7797062-0 (Version None)
Quarter: 2011Q4

REPORT INFORMATION
  Report Type: 
  Country: None (occurrence: None)
  Receive Date: 20111005
  Receipt Date: 20111004
  Transmission Date: 20120403
  Serious: Yes (Hospitalization)
  Sender: FDA-Public Use
  Company Number: IT-SANOFI-AVENTIS-2011SA059229

PATIENT
  Age: 70 Year
  Sex: Female

DRUGS (6)
  1. FEXOFENADINE HCL [Suspect]
     Route: 048
     Dates: start: 20100101, end: 20110503
  2. RAMIPRIL [Suspect]
     Route: 048
     Dates: start: 20100101, end: 20110503
  3. PAROXETINE HCL [Suspect]
     Route: 048
     Dates: start: 20110423, end: 20110503
  4. VYTORIN [Suspect]
     Route: 048
     Dates: start: 20100101, end: 20110503
  5. ATENOLOL [Suspect]
     Route: 048
     Dates: start: 20100101, end: 20110503
  6. DELORAZEPAM [Suspect]
     Route: 048
     Dates: start: 20100101, end: 20110503

REACTIONS (7)
  - RETROGRADE AMNESIA [None]
  - SOPOR [None]
  - AGITATION [None]
  - ABNORMAL BEHAVIOUR [None]
  - PSYCHOMOTOR RETARDATION [None]
  - DISORIENTATION [None]
  - BRADYPHRENIA [None]
